FAERS Safety Report 6355211-5 (Version None)
Quarter: 2009Q3

REPORT INFORMATION
  Report Type: 
  Country: None (occurrence: None)
  Receive Date: 20090914
  Receipt Date: 20090908
  Transmission Date: 20100115
  Serious: Yes (Life-Threatening, Hospitalization)
  Sender: FDA-Public Use
  Company Number: US-JNJFOC-20090706835

PATIENT
  Sex: Male
  Weight: 37.7 kg

DRUGS (6)
  1. INFLIXIMAB [Suspect]
     Route: 042
  2. INFLIXIMAB [Suspect]
     Indication: CROHN'S DISEASE
     Route: 042
  3. AMINOSALICYLIC ACID [Concomitant]
     Route: 048
  4. FERROUS SULFATE TAB [Concomitant]
  5. PROBIOTICS [Concomitant]
  6. PREDNISONE [Concomitant]

REACTIONS (4)
  - CROHN'S DISEASE [None]
  - DEHYDRATION [None]
  - HYPONATRAEMIA [None]
  - SUICIDAL IDEATION [None]
